FAERS Safety Report 6715320-5 (Version None)
Quarter: 2010Q2

REPORT INFORMATION
  Report Type: 
  Country: None (occurrence: None)
  Receive Date: 20100507
  Receipt Date: 20100507
  Transmission Date: 20101027
  Serious: No
  Sender: FDA-Public Use
  Company Number: None

PATIENT
  Age: 11 Month
  Sex: Male
  Weight: 10.8863 kg

DRUGS (1)
  1. MOTRIN [Suspect]
     Indication: TEETHING
     Dosage: 1.25 ML BEDTIME PO
     Route: 048
     Dates: start: 20100429, end: 20100504

REACTIONS (1)
  - UNEVALUABLE EVENT [None]
